FAERS Safety Report 4643437-8 (Version None)
Quarter: 2005Q2

REPORT INFORMATION
  Report Type: 
  Country: None (occurrence: None)
  Receive Date: 20050420
  Receipt Date: 20050420
  Transmission Date: 20051028
  Serious: Yes (Hospitalization)
  Sender: FDA-Public Use
  Company Number: None

PATIENT
  Age: 53 Year
  Sex: Male
  Weight: 74.3899 kg

DRUGS (8)
  1. VELCADE [Suspect]
     Indication: GASTRIC CANCER
     Dosage: 1.6 MG/M2 D1, D8 INTRAVENOUS
     Route: 042
     Dates: start: 20050329, end: 20050329
  2. OXALIPLATIN [Suspect]
     Indication: GASTRIC CANCER
     Dosage: 130.0 MG/M2 D1 INTRAVENOUS
     Route: 042
     Dates: start: 20050329, end: 20050329
  3. CAPECITABINE [Suspect]
     Dosage: 750 MG/M2 D1 THROUGH 14
  4. NEXIUM [Concomitant]
  5. MS CONTIN [Concomitant]
  6. KYTRIL [Concomitant]
  7. SENNA-S [Concomitant]
  8. KEFLEX [Concomitant]

REACTIONS (3)
  - DIARRHOEA [None]
  - NAUSEA [None]
  - VOMITING [None]
